FAERS Safety Report 6659639-5 (Version None)
Quarter: 2010Q1

REPORT INFORMATION
  Report Type: 
  Country: None (occurrence: None)
  Receive Date: 20100330
  Receipt Date: 20100319
  Transmission Date: 20100710
  Serious: Yes (Hospitalization, Other)
  Sender: FDA-Public Use
  Company Number: US-BAXTER-2010BH007535

PATIENT
  Age: 68 Year
  Sex: Female

DRUGS (2)
  1. DIANEAL [Suspect]
     Indication: PERITONEAL DIALYSIS
     Route: 033
     Dates: end: 20100301
  2. IPN [Suspect]
     Indication: DRUG USE FOR UNKNOWN INDICATION
     Route: 033

REACTIONS (5)
  - ASTHENIA [None]
  - HYPOGLYCAEMIA [None]
  - HYPOKALAEMIA [None]
  - HYPOTENSION [None]
  - LOSS OF CONSCIOUSNESS [None]
